FAERS Safety Report 8911501 (Version 1)
Quarter: 2012Q4

REPORT INFORMATION
  Report Type: Spontaneous
  Country: NO (occurrence: None)
  Receive Date: 20121113
  Receipt Date: 20121113
  Transmission Date: 20130627
  Serious: Yes (Life-Threatening, Hospitalization, Other)
  Sender: FDA-Public Use
  Company Number: AUR-APL-2012-04810

PATIENT
  Age: 7 Decade
  Sex: Male

DRUGS (3)
  1. GABAPENTIN [Suspect]
     Indication: CHEST PAIN
  2. METOPROLOL (METOPROLOL) [Suspect]
  3. PYRIDOSTIGMINE (PYRIDOSTIGMINE) [Concomitant]

REACTIONS (4)
  - Myocardial infarction [None]
  - Myasthenia gravis [None]
  - Dyspnoea [None]
  - General physical health deterioration [None]
